FAERS Safety Report 17862481 (Version 1)
Quarter: 2020Q2

REPORT INFORMATION
  Report Type: Spontaneous
  Country: US (occurrence: US)
  Receive Date: 20200604
  Receipt Date: 20200604
  Transmission Date: 20200714
  Serious: No
  Sender: FDA-Public Use
  Company Number: US-FOUNDATIONCONSUMERHC-2020-US-002780

PATIENT
  Age: 21 Year
  Sex: Female

DRUGS (1)
  1. TAKE ACTION [Suspect]
     Active Substance: LEVONORGESTREL
     Indication: POST COITAL CONTRACEPTION
     Dosage: 1.5 MG X 2 DOSES (2019 DOSE WAS EITHER PLAN B OR TAKE ACTION AND 2020 DOSE WAS TAKE ACTION)
     Route: 048
     Dates: start: 2019, end: 20200201

REACTIONS (4)
  - Nausea [Recovered/Resolved]
  - Vaginal discharge [Not Recovered/Not Resolved]
  - Dyspepsia [Recovered/Resolved]
  - Dysmenorrhoea [Not Recovered/Not Resolved]

NARRATIVE: CASE EVENT DATE: 20200205
